FAERS Safety Report 19599783 (Version 1)
Quarter: 2021Q3

REPORT INFORMATION
  Report Type: Spontaneous
  Country: US (occurrence: US)
  Receive Date: 20210723
  Receipt Date: 20210723
  Transmission Date: 20211014
  Serious: No
  Sender: FDA-Public Use
  Company Number: None

PATIENT
  Age: 79 Year
  Sex: Male

DRUGS (2)
  1. GILOTRIF [Suspect]
     Active Substance: AFATINIB
     Indication: LUNG NEOPLASM MALIGNANT
     Route: 048
     Dates: start: 20210708, end: 20210723
  2. GILOTRIF [Concomitant]
     Active Substance: AFATINIB
     Dates: start: 20210708, end: 20210723

REACTIONS (2)
  - Dry skin [None]
  - Diarrhoea [None]

NARRATIVE: CASE EVENT DATE: 20210723
